FAERS Safety Report 13076432 (Version 3)
Quarter: 2017Q1

REPORT INFORMATION
  Report Type: Spontaneous
  Country: US (occurrence: US)
  Receive Date: 20161230
  Receipt Date: 20170327
  Transmission Date: 20170428
  Serious: Yes (Other)
  Sender: FDA-Public Use
  Company Number: US-JNJFOC-20161225283

PATIENT
  Sex: Female
  Weight: 53.52 kg

DRUGS (8)
  1. SIMVASTATIN. [Concomitant]
     Active Substance: SIMVASTATIN
     Dosage: ^DAILY AS^
     Route: 065
  2. RISPERDAL CONSTA [Suspect]
     Active Substance: RISPERIDONE
     Indication: SCHIZOAFFECTIVE DISORDER BIPOLAR TYPE
     Route: 030
  3. OMEGA 3 [Concomitant]
     Active Substance: OMEGA-3 FATTY ACIDS
     Dosage: ^AM 4 PM^
     Route: 065
  4. METFORMIN [Concomitant]
     Active Substance: METFORMIN HYDROCHLORIDE
     Dosage: ^AM 14 PM^
  5. SERTRALINE [Concomitant]
     Active Substance: SERTRALINE HYDROCHLORIDE
     Dosage: IN THE MORNING.
     Route: 065
  6. ACETYLSALICYLIC ACID [Concomitant]
     Active Substance: ASPIRIN
     Dosage: IN THE MORNING
     Route: 065
  7. CLOZAPINE. [Concomitant]
     Active Substance: CLOZAPINE
     Dosage: ^DAILY AS^
     Route: 065
  8. METOPROLOL. [Concomitant]
     Active Substance: METOPROLOL
     Dosage: IN THE MORNING.
     Route: 065

REACTIONS (6)
  - Incorrect product storage [Unknown]
  - Electroconvulsive therapy [Not Recovered/Not Resolved]
  - Lipids increased [Not Recovered/Not Resolved]
  - Product outer packaging issue [Unknown]
  - Diabetes mellitus [Not Recovered/Not Resolved]
  - Catheter placement [Not Recovered/Not Resolved]
